FAERS Safety Report 10470296 (Version 5)
Quarter: 2015Q4

REPORT INFORMATION
  Report Type: Spontaneous
  Country: US (occurrence: US)
  Receive Date: 20140923
  Receipt Date: 20151006
  Transmission Date: 20160304
  Serious: Yes (Death, Hospitalization, Other)
  Sender: FDA-Public Use
  Company Number: US-009507513-1409USA010744

PATIENT
  Sex: Male
  Weight: 74.83 kg

DRUGS (1)
  1. JANUVIA [Suspect]
     Active Substance: SITAGLIPTIN PHOSPHATE
     Indication: TYPE 2 DIABETES MELLITUS
     Dosage: 100 MG, QD
     Route: 048
     Dates: start: 2007, end: 20120829

REACTIONS (27)
  - Pancreatic atrophy [Unknown]
  - Dyspepsia [Unknown]
  - Dehydration [Unknown]
  - Gallbladder disorder [Unknown]
  - Cardiac murmur [Unknown]
  - Biliary neoplasm [Unknown]
  - Hypertension [Unknown]
  - Obstructive uropathy [Unknown]
  - Myalgia [Unknown]
  - Pancreatic carcinoma [Fatal]
  - Nephrolithiasis [Unknown]
  - Metabolic acidosis [Recovered/Resolved]
  - Dementia [Unknown]
  - Normochromic normocytic anaemia [Unknown]
  - Radiotherapy [Unknown]
  - Bile duct stone [Unknown]
  - Pancreatitis [Unknown]
  - Cholecystitis [Unknown]
  - Appendicectomy [Unknown]
  - Stent placement [Unknown]
  - Confusional state [Unknown]
  - Bile duct stent insertion [Unknown]
  - Pneumonia [Fatal]
  - Benign prostatic hyperplasia [Unknown]
  - Acute kidney injury [Recovered/Resolved]
  - Hydronephrosis [Unknown]
  - Dilatation intrahepatic duct acquired [Unknown]

NARRATIVE: CASE EVENT DATE: 2007
